FAERS Safety Report 7941304-5 (Version None)
Quarter: 2011Q4

REPORT INFORMATION
  Report Type: 
  Country: None (occurrence: None)
  Receive Date: 20111122
  Receipt Date: 20110209
  Transmission Date: 20120403
  Serious: Yes (Hospitalization, Other)
  Sender: FDA-Public Use
  Company Number: GER/USA/11/0017375

PATIENT
  Age: 47 Year
  Sex: Female

DRUGS (2)
  1. IBUPROFEN [Suspect]
     Indication: BACK PAIN
     Dosage: ORAL
     Route: 048
  2. CALCIUM CARBONATE [Suspect]
     Indication: DYSPEPSIA

REACTIONS (18)
  - ASTHENIA [None]
  - PARAESTHESIA [None]
  - VAGINAL HAEMORRHAGE [None]
  - GASTRITIS EROSIVE [None]
  - PAIN IN EXTREMITY [None]
  - HYPERAESTHESIA [None]
  - LUNG INFILTRATION [None]
  - MILK-ALKALI SYNDROME [None]
  - WEIGHT DECREASED [None]
  - RENAL FAILURE [None]
  - SLOW SPEECH [None]
  - HAEMOGLOBIN DECREASED [None]
  - DIZZINESS [None]
  - MEMORY IMPAIRMENT [None]
  - SOMNOLENCE [None]
  - BLUNTED AFFECT [None]
  - BLOOD PRESSURE INCREASED [None]
  - DEHYDRATION [None]
